FAERS Safety Report 9721489 (Version 2)
Quarter: 2014Q1

REPORT INFORMATION
  Report Type: Spontaneous
  Country: US (occurrence: US)
  Receive Date: 20131130
  Receipt Date: 20140220
  Transmission Date: 20141002
  Serious: No
  Sender: FDA-Public Use
  Company Number: US-009507513-1311USA012036

PATIENT
  Age: 48 Year
  Sex: Female
  Weight: 112.47 kg

DRUGS (3)
  1. VICTRELIS [Suspect]
     Indication: HEPATITIS C
     Dosage: 800 MG EVERY 8 HOURS
     Route: 048
     Dates: start: 20131010
  2. PEGASYS [Suspect]
     Dosage: UNK
  3. RIBAPAK [Suspect]
     Dosage: UNK

REACTIONS (1)
  - Epistaxis [Recovered/Resolved]
